FAERS Safety Report 8613485 (Version 3)
Quarter: 2013Q2

REPORT INFORMATION
  Report Type: Spontaneous
  Country: US (occurrence: US)
  Receive Date: 20120614
  Receipt Date: 20130617
  Transmission Date: 20140414
  Serious: Yes (Hospitalization, Other)
  Sender: FDA-Public Use
  Company Number: US-ASTRAZENECA-2012SE36135

PATIENT
  Age: 49 Year
  Sex: Female
  Weight: 61.2 kg

DRUGS (47)
  1. PREVACID [Concomitant]
     Dates: start: 2003, end: 2004
  2. ZANTAC [Concomitant]
     Dates: start: 2004, end: 2013
  3. ZANTAC [Concomitant]
     Dates: start: 20080305
  4. TUMS [Concomitant]
     Dosage: 2 DAILY
     Dates: start: 2003, end: 2013
  5. NORCO [Concomitant]
     Indication: PAIN
     Dosage: 5-500 MG
  6. SOMA [Concomitant]
     Indication: MUSCLE SPASMS
     Dates: start: 20080125
  7. VERAPAMIL [Concomitant]
     Indication: BLOOD PRESSURE
     Dates: start: 20100115
  8. VERAPAMIL [Concomitant]
     Indication: PALPITATIONS
     Dates: start: 20100115
  9. AGGRENOX [Concomitant]
     Indication: MIGRAINE
     Route: 048
  10. PROZAC [Concomitant]
     Indication: DEPRESSION
  11. ANTIVERT [Concomitant]
     Indication: DIZZINESS
  12. VITAMIN D [Concomitant]
     Indication: BONE DISORDER
  13. LIPITOR [Concomitant]
  14. CLONAZEPAM [Concomitant]
     Indication: NERVOUSNESS
  15. PROMETHAZINE [Concomitant]
     Indication: GASTRIC DISORDER
     Dates: start: 20080204
  16. CYMBALTA [Concomitant]
     Dates: start: 20080617
  17. NITROGLYCERIN [Concomitant]
     Dates: start: 20090604
  18. PROPO N [Concomitant]
     Dosage: 100-650 MG
  19. LYRICA [Concomitant]
     Dates: start: 20080517
  20. ZEGERID [Concomitant]
     Dosage: 40-1100 MG
     Dates: start: 20080517
  21. PYRIDOSTIGM [Concomitant]
     Dates: start: 20080617
  22. FAMOTIDINE [Concomitant]
     Dates: start: 20081104
  23. TOPIRAMATE [Concomitant]
     Dates: start: 20090410
  24. PLAVIX [Concomitant]
     Dates: start: 20090410
  25. VYOTORIN [Concomitant]
     Dosage: 10-40 MG
     Dates: start: 20081104
  26. TRAMADOL [Concomitant]
     Dates: start: 20090615
  27. AMITRIPTYLIN [Concomitant]
     Dates: start: 20100115
  28. DICLOFENAC [Concomitant]
     Dates: start: 20100115
  29. ISOMETH/ACETAMIN [Concomitant]
     Dates: start: 20100319
  30. BUTALB/ACETAMIN [Concomitant]
     Dosage: 50-325 MG
     Dates: start: 20100413
  31. MECLIZINE [Concomitant]
     Dates: start: 20100617
  32. PAK [Concomitant]
  33. AMITIZA [Concomitant]
     Dates: start: 20130225
  34. FLUOXETINE [Concomitant]
     Dates: start: 20130225
  35. GABAPENTIN [Concomitant]
     Dates: start: 20110411
  36. ALPRAZOLAM [Concomitant]
     Dates: start: 20110310
  37. BENZONATATE [Concomitant]
     Dates: start: 20111018
  38. BUPROPION [Concomitant]
     Dates: start: 20111231
  39. XANAX [Concomitant]
  40. HYDROXYZINE [Concomitant]
  41. IOPHEN C NR [Concomitant]
  42. BETAMETHASONE VALERATE [Concomitant]
  43. OXYCODON/ACETAMINOPHE [Concomitant]
     Dosage: 5-500 MG
     Dates: start: 20080125
  44. FUROSEMIDE [Concomitant]
     Dates: start: 20080402
  45. NEXIUM [Suspect]
     Indication: GASTROOESOPHAGEAL REFLUX DISEASE
     Route: 048
  46. NEXIUM [Suspect]
     Indication: GASTROOESOPHAGEAL REFLUX DISEASE
     Route: 048
     Dates: start: 2004
  47. NEXIUM [Suspect]
     Indication: GASTROOESOPHAGEAL REFLUX DISEASE
     Route: 048
     Dates: start: 20080204

REACTIONS (9)
  - Cellulitis [Unknown]
  - Pneumonia [Unknown]
  - Transient ischaemic attack [Unknown]
  - Osteoporosis [Unknown]
  - Multiple fractures [Unknown]
  - Angina pectoris [Unknown]
  - Chronic obstructive pulmonary disease [Unknown]
  - Vitamin D deficiency [Unknown]
  - Bronchitis [Unknown]
